FAERS Safety Report 15067675 (Version 1)
Quarter: 2018Q2

REPORT INFORMATION
  Report Type: Spontaneous
  Country: JP (occurrence: JP)
  Receive Date: 20180626
  Receipt Date: 20180626
  Transmission Date: 20180711
  Serious: Yes (Hospitalization)
  Sender: FDA-Public Use
  Company Number: JP-NAPPMUNDI-GBR-2018-0056985

PATIENT

DRUGS (1)
  1. NORSPAN [Suspect]
     Active Substance: BUPRENORPHINE
     Indication: ARTHRALGIA
     Dosage: 20 MCG, Q1H
     Route: 062

REACTIONS (3)
  - Application site dermatitis [Unknown]
  - Pneumonia [Unknown]
  - Wrong technique in product usage process [Unknown]
